FAERS Safety Report 8205899-9 (Version None)
Quarter: 2012Q1

REPORT INFORMATION
  Report Type: 
  Country: None (occurrence: None)
  Receive Date: 20120313
  Receipt Date: 20120307
  Transmission Date: 20120608
  Serious: Yes (Hospitalization, Congenital Anomaly)
  Sender: FDA-Public Use
  Company Number: GXKR2012DE001092

PATIENT
  Sex: Male
  Weight: 3.2 kg

DRUGS (4)
  1. AMITRIPTYLINE HCL [Suspect]
     Dosage: MOTHER DOSE: 75 MG/D
     Route: 064
  2. MESALAMINE [Concomitant]
     Route: 064
  3. INSULIN [Concomitant]
     Route: 064
  4. TILIDINE [Suspect]
     Dosage: MATERNAL DOSE: 8 MG/D
     Route: 064

REACTIONS (4)
  - CONVULSION NEONATAL [None]
  - FOETAL EXPOSURE DURING PREGNANCY [None]
  - CONGENITAL CHOROID PLEXUS CYST [None]
  - CYST [None]
